FAERS Safety Report 7215767-7 (Version None)
Quarter: 2011Q1

REPORT INFORMATION
  Report Type: 
  Country: None (occurrence: None)
  Receive Date: 20110107
  Receipt Date: 20110103
  Transmission Date: 20110831
  Serious: Yes (Hospitalization)
  Sender: FDA-Public Use
  Company Number: CH-PFIZER INC-2010174487

PATIENT
  Age: 73 Year
  Sex: Male

DRUGS (5)
  1. TRASICOR [Concomitant]
     Dosage: 40 MG, 1X/DAY
     Route: 048
  2. RENITEN MITE RPD [Concomitant]
     Dosage: UNK
     Route: 048
     Dates: start: 20091224
  3. SUTENT [Suspect]
     Indication: METASTATIC RENAL CELL CARCINOMA
     Dosage: UNK MG, UNK
     Route: 048
     Dates: start: 20091023, end: 20100519
  4. ASPIRIN [Suspect]
     Dosage: 300 MG, 1X/DAY
     Route: 048
     Dates: end: 20100519
  5. PANTOPRAZOLE [Concomitant]
     Dosage: 40 MG, 1X/DAY
     Route: 048

REACTIONS (1)
  - CEREBRAL HAEMORRHAGE [None]
